FAERS Safety Report 26022284 (Version 1)
Quarter: 2025Q4

REPORT INFORMATION
  Report Type: Spontaneous
  Country: GB (occurrence: GB)
  Receive Date: 20251110
  Receipt Date: 20251110
  Transmission Date: 20260118
  Serious: Yes (Life-Threatening, Hospitalization, Other)
  Sender: NEXUS PHARMACEUTICALS
  Company Number: GB-Nexus Pharma-000518

PATIENT
  Age: 39 Year
  Sex: Female

DRUGS (2)
  1. TRANEXAMIC ACID [Suspect]
     Active Substance: TRANEXAMIC ACID
     Indication: Uterine leiomyoma
  2. TRANEXAMIC ACID [Suspect]
     Active Substance: TRANEXAMIC ACID
     Indication: Heavy menstrual bleeding

REACTIONS (3)
  - Cerebral venous sinus thrombosis [Recovered/Resolved]
  - Haemorrhage intracranial [Recovered/Resolved]
  - Generalised tonic-clonic seizure [Recovered/Resolved]
